FAERS Safety Report 25466861 (Version 2)
Quarter: 2025Q2

REPORT INFORMATION
  Report Type: Spontaneous
  Country: JP (occurrence: JP)
  Receive Date: 20250623
  Receipt Date: 20250630
  Transmission Date: 20250717
  Serious: Yes (Hospitalization)
  Sender: GLAXOSMITHKLINE
  Company Number: JP-GSK-JP2025JPN075251

PATIENT
  Age: 17 Year
  Sex: Male

DRUGS (1)
  1. FLOLAN [Suspect]
     Active Substance: EPOPROSTENOL SODIUM

REACTIONS (5)
  - Hospitalisation [Unknown]
  - Gastrointestinal disorder [Unknown]
  - Headache [Unknown]
  - Adverse reaction [Unknown]
  - Panic attack [Unknown]
